FAERS Safety Report 6835845-1 (Version None)
Quarter: 2010Q3

REPORT INFORMATION
  Report Type: 
  Country: None (occurrence: None)
  Receive Date: 20100712
  Receipt Date: 20100712
  Transmission Date: 20110219
  Serious: Yes (Other)
  Sender: FDA-Public Use
  Company Number: None

PATIENT
  Age: 69 Year
  Sex: Female
  Weight: 117.9352 kg

DRUGS (2)
  1. LYRICA [Suspect]
     Indication: DIABETIC NEUROPATHY
     Dosage: 75KG 1 BID
     Dates: start: 20100707, end: 20100709
  2. LYRICA [Suspect]

REACTIONS (25)
  - ACTIVITIES OF DAILY LIVING IMPAIRED [None]
  - ANXIETY [None]
  - ARTHRALGIA [None]
  - BALANCE DISORDER [None]
  - BLOOD GLUCOSE INCREASED [None]
  - CONFUSIONAL STATE [None]
  - COORDINATION ABNORMAL [None]
  - DIPLOPIA [None]
  - DIZZINESS [None]
  - DYSGRAPHIA [None]
  - DYSKINESIA [None]
  - FEAR [None]
  - FEELING ABNORMAL [None]
  - GAIT DISTURBANCE [None]
  - MALAISE [None]
  - MEMORY IMPAIRMENT [None]
  - MENTAL DISORDER [None]
  - MUSCLE SPASMS [None]
  - MUSCULAR WEAKNESS [None]
  - PAIN IN EXTREMITY [None]
  - SOMNOLENCE [None]
  - THINKING ABNORMAL [None]
  - URINARY INCONTINENCE [None]
  - VISION BLURRED [None]
  - VISUAL IMPAIRMENT [None]
